FAERS Safety Report 6335694 (Version 2)
Quarter: 2021Q2

REPORT INFORMATION
  Report Type: Report from Study
  Country: AU (occurrence: AU)
  Receive Date: 20070618
  Receipt Date: 20210409
  Transmission Date: 20210717
  Serious: Yes (Other)
  Sender: FDA-Public Use
  Company Number: AU-PFIZER INC-2007048044

PATIENT

DRUGS (4)
  1. PARACETAMOL [Suspect]
     Active Substance: ACETAMINOPHEN
     Dosage: UNK
  2. CLOZAPINE. [Interacting]
     Active Substance: CLOZAPINE
     Dosage: UNK
  3. RANITIDINE. [Interacting]
     Active Substance: RANITIDINE
     Dosage: UNK
  4. SERTRALINE HCL [Suspect]
     Active Substance: SERTRALINE HYDROCHLORIDE
     Dosage: UNK

REACTIONS (2)
  - Drug interaction [Unknown]
  - Myocarditis [Unknown]
